FAERS Safety Report 8524057-1 (Version None)
Quarter: 2012Q3

REPORT INFORMATION
  Report Type: 
  Country: None (occurrence: None)
  Receive Date: 20120720
  Receipt Date: 20120717
  Transmission Date: 20120928
  Serious: Yes (Life-Threatening, Other)
  Sender: FDA-Public Use
  Company Number: US-TEVA-349027USA

PATIENT

DRUGS (3)
  1. AZILECT [Suspect]
     Indication: PARKINSON'S DISEASE
     Route: 048
  2. UNSPECIFIED LOW DOSE ANTIDEPRESSANT [Suspect]
  3. PROZAC [Suspect]

REACTIONS (1)
  - SEROTONIN SYNDROME [None]
